FAERS Safety Report 10411948 (Version 1)
Quarter: 2014Q2

REPORT INFORMATION
  Report Type: Spontaneous
  Country: US (occurrence: None)
  Receive Date: 20140604
  Receipt Date: 20140604
  Transmission Date: 20141212
  Serious: Yes (Other)
  Sender: FDA-Public Use
  Company Number: 163-POMAL-14045754

PATIENT
  Age: 82 Year
  Sex: Female
  Weight: 50.3 kg

DRUGS (9)
  1. POMALYST (POMALIDOMIDE) (4 MILLIGRAM, CAPSULES) [Suspect]
     Indication: PLASMA CELL MYELOMA
     Dosage: 4 MG, 21 IN 28 D
     Route: 048
     Dates: start: 20140406, end: 20140413
  2. DEXAMETHASONE [Concomitant]
  3. DIGOXIN [Concomitant]
  4. POTASSIUM CHLORIDE [Concomitant]
  5. PROPAFENONE [Concomitant]
  6. SPIRONOLACTONE [Concomitant]
  7. TRIAMCINOLONE [Concomitant]
  8. VALACYCLOVIR (VALACICLOVIR HYDROCHLORIDE) [Concomitant]
  9. WARFARIN [Concomitant]

REACTIONS (1)
  - Atrial fibrillation [None]
